FAERS Safety Report 17697267 (Version 1)
Quarter: 2020Q2

REPORT INFORMATION
  Report Type: Spontaneous
  Country: US (occurrence: US)
  Receive Date: 20200422
  Receipt Date: 20200422
  Transmission Date: 20200714
  Serious: No
  Sender: FDA-Public Use
  Company Number: None

PATIENT
  Age: 48 Year
  Sex: Female

DRUGS (1)
  1. ACTEMRA ACTPEN [Suspect]
     Active Substance: TOCILIZUMAB
     Indication: RHEUMATOID ARTHRITIS
     Route: 058
     Dates: start: 201909

REACTIONS (6)
  - Manufacturing product shipping issue [None]
  - Chills [None]
  - Swelling [None]
  - Arthralgia [None]
  - Condition aggravated [None]
  - Therapy interrupted [None]

NARRATIVE: CASE EVENT DATE: 20200422
